FAERS Safety Report 13682364 (Version 3)
Quarter: 2017Q3

REPORT INFORMATION
  Report Type: Spontaneous
  Country: FR (occurrence: FR)
  Receive Date: 20170623
  Receipt Date: 20170806
  Transmission Date: 20171127
  Serious: Yes (Hospitalization)
  Sender: FDA-Public Use
  Company Number: FR-AMGEN-FRASP2017095097

PATIENT
  Age: 2 Day
  Sex: Female
  Weight: 2.39 kg

DRUGS (1)
  1. ENBREL [Suspect]
     Active Substance: ETANERCEPT
     Indication: EXPOSURE DURING PREGNANCY
     Dosage: 50 MG, WEEKLY
     Route: 064
     Dates: start: 201508, end: 20160820

REACTIONS (3)
  - Neonatal cholestasis [Recovered/Resolved]
  - Foetal growth restriction [Recovered/Resolved]
  - Maternal exposure during pregnancy [Recovered/Resolved]

NARRATIVE: CASE EVENT DATE: 20170406
